FAERS Safety Report 4525575-3 (Version None)
Quarter: 2004Q4

REPORT INFORMATION
  Report Type: 
  Country: None (occurrence: None)
  Receive Date: 20041116
  Receipt Date: 20040830
  Transmission Date: 20050328
  Serious: No
  Sender: FDA-Public Use
  Company Number: S04-USA-05849-01

PATIENT
  Age: 73 Year
  Sex: Female

DRUGS (14)
  1. NAMENDA [Suspect]
     Indication: DEMENTIA
     Dosage: 10 MG BID PO
     Route: 048
  2. NAMENDA [Suspect]
     Indication: DEMENTIA
     Dosage: 5 MG QD PO
     Route: 048
     Dates: start: 20040501
  3. NAMENDA [Suspect]
     Indication: DEMENTIA
     Dosage: 5 MG BID PO
     Route: 048
  4. NAMENDA [Suspect]
     Indication: DEMENTIA
     Dosage: 15 MG QD PO
     Route: 048
  5. ARICEPT [Concomitant]
  6. CLONIDINE [Concomitant]
  7. BUMETANIDE [Concomitant]
  8. NEURONTIN (GABAPENTINE) [Concomitant]
  9. CARDIZEM [Concomitant]
  10. PRANDIN [Concomitant]
  11. PRAVACHOL [Concomitant]
  12. RELAFEN [Concomitant]
  13. GLUCOPHAGE [Concomitant]
  14. METHADONE [Concomitant]

REACTIONS (1)
  - HYPOAESTHESIA [None]
